FAERS Safety Report 24541099 (Version 1)
Quarter: 2024Q4

REPORT INFORMATION
  Report Type: Spontaneous
  Country: FR (occurrence: FR)
  Receive Date: 20241023
  Receipt Date: 20241023
  Transmission Date: 20250115
  Serious: Yes (Hospitalization)
  Sender: TEVA
  Company Number: None

PATIENT
  Age: 51 Year
  Sex: Female

DRUGS (4)
  1. BISOPROLOL [Suspect]
     Active Substance: BISOPROLOL\BISOPROLOL FUMARATE
     Indication: Toxicity to various agents
     Dosage: TIME INTERVAL: TOTAL: BISOPROLOL (FUMARATE)
     Route: 048
     Dates: start: 20240928
  2. LOXAPINE [Suspect]
     Active Substance: LOXAPINE
     Indication: Toxicity to various agents
     Dosage: TIME INTERVAL: TOTAL
     Route: 048
     Dates: start: 20240928
  3. VALIUM [Suspect]
     Active Substance: DIAZEPAM
     Indication: Toxicity to various agents
     Dosage: TIME INTERVAL: TOTAL
     Route: 048
     Dates: start: 20240928
  4. AKINETON [Suspect]
     Active Substance: BIPERIDEN HYDROCHLORIDE
     Indication: Toxicity to various agents
     Dosage: TIME INTERVAL: TOTAL: PROLONGED-RELEASE COATED TABLET
     Route: 048
     Dates: start: 20240928

REACTIONS (2)
  - Coma [Recovered/Resolved]
  - Poisoning deliberate [Recovered/Resolved]

NARRATIVE: CASE EVENT DATE: 20240928
